FAERS Safety Report 9543579 (Version 2)
Quarter: 2013Q3

REPORT INFORMATION
  Report Type: Spontaneous
  Country: CN (occurrence: CN)
  Receive Date: 20130923
  Receipt Date: 20130923
  Transmission Date: 20140515
  Serious: Yes (Hospitalization, Other)
  Sender: FDA-Public Use
  Company Number: CN-009507513-1207CHN001742

PATIENT
  Age: 30 Year
  Sex: Female

DRUGS (1)
  1. DIPROSPAN [Suspect]
     Indication: URTICARIA
     Dosage: 5 MG, ONCE
     Route: 030
     Dates: start: 20090725, end: 20090725

REACTIONS (1)
  - Anaphylactic shock [Recovered/Resolved]
